FAERS Safety Report 7520440-1 (Version None)
Quarter: 2011Q2

REPORT INFORMATION
  Report Type: 
  Country: None (occurrence: None)
  Receive Date: 20110602
  Receipt Date: 20110523
  Transmission Date: 20111010
  Serious: Yes (Hospitalization, Disabling, Other)
  Sender: FDA-Public Use
  Company Number: US-MERCK-1011USA01585

PATIENT
  Age: 69 Year
  Sex: Female

DRUGS (9)
  1. VITAMIN E [Concomitant]
     Route: 065
     Dates: start: 19960101, end: 20110301
  2. FOSAMAX [Suspect]
     Route: 048
     Dates: start: 20080101, end: 20081101
  3. ALENDRONATE SODIUM [Suspect]
     Route: 065
     Dates: start: 20080701, end: 20080101
  4. CALCIUM CARBONATE [Concomitant]
     Route: 065
     Dates: start: 20000101
  5. FOSAMAX [Suspect]
     Route: 048
     Dates: start: 20060101, end: 20061101
  6. VITAMINS (UNSPECIFIED) [Concomitant]
     Route: 065
     Dates: start: 19960101
  7. FOSAMAX [Suspect]
     Indication: OSTEOPENIA
     Route: 048
     Dates: start: 20010101, end: 20050801
  8. FOSAMAX [Suspect]
     Route: 048
     Dates: start: 20070501, end: 20070901
  9. CALCIUM CITRATE [Concomitant]
     Route: 065

REACTIONS (11)
  - ARTHROPATHY [None]
  - GINGIVAL DISORDER [None]
  - INFECTION [None]
  - BRONCHITIS [None]
  - STRESS FRACTURE [None]
  - FEMUR FRACTURE [None]
  - BONE DISORDER [None]
  - DRY MOUTH [None]
  - LOW TURNOVER OSTEOPATHY [None]
  - ARTHROSCOPY [None]
  - TOOTH FRACTURE [None]
